FAERS Safety Report 15761569 (Version 1)
Quarter: 2018Q4

REPORT INFORMATION
  Report Type: Spontaneous
  Country: FR (occurrence: FR)
  Receive Date: 20181226
  Receipt Date: 20181226
  Transmission Date: 20190205
  Serious: Yes (Disabling)
  Sender: FDA-Public Use
  Company Number: FR-ALLERGAN-1859027US

PATIENT
  Age: 10 Year
  Sex: Female
  Weight: 34 kg

DRUGS (3)
  1. BOTOX [Suspect]
     Active Substance: ONABOTULINUMTOXINA
     Dosage: ACTUAL: 30 UNITS TO LEFT MUSCLE, 30 UNITS TO RIGHT MUSCLE
     Route: 030
     Dates: start: 20180906, end: 20180906
  2. BOTOX [Suspect]
     Active Substance: ONABOTULINUMTOXINA
     Indication: GAIT DISTURBANCE
     Dosage: ACTUAL: 25 UNITS TO LEFT MUSCLE, 25 UNITS TO RIGHT MUSCLE
     Route: 030
     Dates: start: 20180906, end: 20180906
  3. BOTOX [Suspect]
     Active Substance: ONABOTULINUMTOXINA
     Dosage: ACTUAL: 20 UNITS TO LEFT MUSCLE, 20 UNITS TO RIGHT MUSCLE
     Route: 030
     Dates: start: 20180906, end: 20180906

REACTIONS (5)
  - Urinary incontinence [Recovered/Resolved]
  - Gait disturbance [Recovered/Resolved]
  - Fatigue [Recovered/Resolved]
  - Asthenia [Recovered/Resolved]
  - Off label use [Unknown]

NARRATIVE: CASE EVENT DATE: 201809
